FAERS Safety Report 5225954-5 (Version None)
Quarter: 2007Q1

REPORT INFORMATION
  Report Type: 
  Country: None (occurrence: None)
  Receive Date: 20070201
  Receipt Date: 20070124
  Transmission Date: 20070707
  Serious: Yes (Other)
  Sender: FDA-Public Use
  Company Number: US-JNJFOC-20060900249

PATIENT
  Sex: Female
  Weight: 55.34 kg

DRUGS (12)
  1. REMICADE [Suspect]
     Route: 042
  2. REMICADE [Suspect]
     Indication: COLITIS ULCERATIVE
     Route: 042
  3. PREDNISONE [Concomitant]
     Indication: COLITIS ULCERATIVE
  4. THYROID MEDICATION NOS [Concomitant]
     Indication: HYPOTHYROIDISM
  5. LEVOXYL [Concomitant]
     Dosage: 150/DAY
  6. TYLENOL [Concomitant]
  7. SINGULAIR [Concomitant]
  8. TRAMADOL HCL [Concomitant]
     Dosage: 50/PRN
  9. PROTONIX [Concomitant]
  10. NASONEX [Concomitant]
     Dosage: PRN
  11. BENADRYL [Concomitant]
     Dosage: PRN
  12. DOCUSATE [Concomitant]
     Dosage: PRN

REACTIONS (7)
  - ABDOMINAL DISTENSION [None]
  - BLISTER [None]
  - FLUID RETENTION [None]
  - HEADACHE [None]
  - LUPUS-LIKE SYNDROME [None]
  - PAIN IN JAW [None]
  - SKIN LESION [None]
